FAERS Safety Report 23160532 (Version 3)
Quarter: 2024Q1

REPORT INFORMATION
  Report Type: Report from Study
  Country: US (occurrence: US)
  Receive Date: 20231108
  Receipt Date: 20240104
  Transmission Date: 20240409
  Serious: Yes (Hospitalization, Other)
  Sender: FDA-Public Use
  Company Number: US-ALXN-A202302862AA

PATIENT
  Sex: Male

DRUGS (2)
  1. ULTOMIRIS [Suspect]
     Active Substance: RAVULIZUMAB-CWVZ
     Indication: Myasthenia gravis
     Dosage: UNK
     Route: 065
     Dates: start: 20230303
  2. PREDNISONE [Suspect]
     Active Substance: PREDNISONE
     Indication: Product used for unknown indication
     Dosage: UNK
     Route: 065
     Dates: end: 202305

REACTIONS (26)
  - Myocardial infarction [Unknown]
  - Myasthenia gravis [Unknown]
  - Grip strength decreased [Unknown]
  - Eyelid ptosis [Not Recovered/Not Resolved]
  - Asthenopia [Not Recovered/Not Resolved]
  - Therapeutic response shortened [Unknown]
  - Feeling abnormal [Unknown]
  - Dysphagia [Not Recovered/Not Resolved]
  - Decreased appetite [Not Recovered/Not Resolved]
  - Blood cholesterol abnormal [Unknown]
  - Blood pressure increased [Recovering/Resolving]
  - Oral discomfort [Unknown]
  - Muscular weakness [Not Recovered/Not Resolved]
  - Temperature intolerance [Unknown]
  - Insomnia [Unknown]
  - Hyperhidrosis [Unknown]
  - Mastication disorder [Not Recovered/Not Resolved]
  - Fall [Not Recovered/Not Resolved]
  - Muscle disorder [Not Recovered/Not Resolved]
  - Respiration abnormal [Not Recovered/Not Resolved]
  - Speech disorder [Not Recovered/Not Resolved]
  - Stress [Unknown]
  - Therapeutic product effect decreased [Unknown]
  - Asthenia [Not Recovered/Not Resolved]
  - Fatigue [Not Recovered/Not Resolved]
  - Dyspnoea [Unknown]

NARRATIVE: CASE EVENT DATE: 20230305
